FAERS Safety Report 10230627 (Version 1)
Quarter: 2014Q2

REPORT INFORMATION
  Report Type: Spontaneous
  Country: FR (occurrence: FR)
  Receive Date: 20140611
  Receipt Date: 20140611
  Transmission Date: 20141212
  Serious: Yes (Hospitalization)
  Sender: FDA-Public Use
  Company Number: FR-PFIZER INC-2014155009

PATIENT
  Age: 47 Year
  Sex: Female

DRUGS (2)
  1. SOLU-MEDROL [Suspect]
     Indication: MULTIPLE SCLEROSIS
     Dosage: SINGLE
     Route: 040
     Dates: start: 201101, end: 201101
  2. SOLU-MEDROL [Suspect]
     Dosage: UNK
     Route: 040
     Dates: start: 201310, end: 201310

REACTIONS (2)
  - Drug-induced liver injury [Recovered/Resolved]
  - Hepatic failure [Recovered/Resolved]
